FAERS Safety Report 19973490 (Version 3)
Quarter: 2021Q4

REPORT INFORMATION
  Report Type: Spontaneous
  Country: JP (occurrence: JP)
  Receive Date: 20211020
  Receipt Date: 20211123
  Transmission Date: 20220304
  Serious: Yes (Death, Other)
  Sender: FDA-Public Use
  Company Number: JP-BAYER-2021A229429

PATIENT
  Age: 81 Year
  Sex: Female

DRUGS (18)
  1. ASPIRIN [Suspect]
     Active Substance: ASPIRIN
     Indication: Cardiac failure chronic
     Dosage: UNK
     Route: 048
     Dates: end: 20211010
  2. ASPIRIN [Suspect]
     Active Substance: ASPIRIN
     Indication: Hypertension
  3. ASPIRIN [Suspect]
     Active Substance: ASPIRIN
     Indication: Atrial fibrillation
  4. FUROSEMIDE [Concomitant]
     Active Substance: FUROSEMIDE
     Indication: Cardiac failure chronic
     Route: 048
     Dates: end: 20211010
  5. FUROSEMIDE [Concomitant]
     Active Substance: FUROSEMIDE
     Indication: Hypertension
  6. FUROSEMIDE [Concomitant]
     Active Substance: FUROSEMIDE
     Indication: Atrial fibrillation
  7. AZOSEMIDE [Concomitant]
     Active Substance: AZOSEMIDE
     Indication: Cardiac failure chronic
     Dosage: UNK
     Route: 048
     Dates: end: 20211010
  8. AZOSEMIDE [Concomitant]
     Active Substance: AZOSEMIDE
     Indication: Hypertension
  9. AZOSEMIDE [Concomitant]
     Active Substance: AZOSEMIDE
     Indication: Atrial fibrillation
  10. MIRABEGRON [Concomitant]
     Active Substance: MIRABEGRON
     Indication: Cardiac failure chronic
     Dosage: UNK
     Route: 048
     Dates: end: 20211010
  11. MIRABEGRON [Concomitant]
     Active Substance: MIRABEGRON
     Indication: Hypertension
  12. MIRABEGRON [Concomitant]
     Active Substance: MIRABEGRON
     Indication: Atrial fibrillation
  13. DIGOXIN [Concomitant]
     Active Substance: DIGOXIN
     Indication: Cardiac failure chronic
     Dosage: UNK
     Route: 048
     Dates: end: 20211010
  14. DIGOXIN [Concomitant]
     Active Substance: DIGOXIN
     Indication: Hypertension
  15. DIGOXIN [Concomitant]
     Active Substance: DIGOXIN
     Indication: Atrial fibrillation
  16. SPIRONOLACTONE [Concomitant]
     Active Substance: SPIRONOLACTONE
     Indication: Cardiac failure chronic
     Dosage: UNK
     Route: 048
     Dates: end: 20211010
  17. SPIRONOLACTONE [Concomitant]
     Active Substance: SPIRONOLACTONE
     Indication: Hypertension
  18. SPIRONOLACTONE [Concomitant]
     Active Substance: SPIRONOLACTONE
     Indication: Atrial fibrillation

REACTIONS (3)
  - Respiratory failure [Fatal]
  - Cardiac failure chronic [Unknown]
  - Off label use [Unknown]

NARRATIVE: CASE EVENT DATE: 20211001
